FAERS Safety Report 7249109-8 (Version None)
Quarter: 2011Q1

REPORT INFORMATION
  Report Type: 
  Country: None (occurrence: None)
  Receive Date: 20110121
  Receipt Date: 20110121
  Transmission Date: 20110831
  Serious: Yes (Other)
  Sender: FDA-Public Use
  Company Number: None

PATIENT
  Age: 91 Year
  Sex: Female
  Weight: 67.1324 kg

DRUGS (1)
  1. ALBUTEROL SULFATE [Suspect]
     Indication: PULMONARY CONGESTION
     Dosage: 1 SINGLE USE VIAL ONCE A DAY OTHER (2X 5 MINUTES EACH)
     Route: 046

REACTIONS (1)
  - TREMOR [None]
